FAERS Safety Report 5255179-9 (Version None)
Quarter: 2007Q1

REPORT INFORMATION
  Report Type: 
  Country: None (occurrence: None)
  Receive Date: 20070228
  Receipt Date: 20070219
  Transmission Date: 20070707
  Serious: Yes (Death, Other)
  Sender: FDA-Public Use
  Company Number: 2006JP004683

PATIENT
  Age: 73 Year
  Sex: Female
  Weight: 41 kg

DRUGS (9)
  1. PROGRAF [Suspect]
     Indication: RHEUMATOID ARTHRITIS
     Dosage: 1 MG, UID/QD, ORAL
     Route: 048
     Dates: start: 20060927, end: 20061007
  2. RHEUMATREX [Suspect]
     Indication: RHEUMATOID ARTHRITIS
     Dosage: 8 MG, WEEKLY, ORAL
     Route: 048
     Dates: start: 20050701, end: 20061011
  3. REMICADE [Concomitant]
  4. LIPITOR [Concomitant]
  5. OLMETEC (OLMESARTAN MEDOXOMIL) [Concomitant]
  6. CLEANAL (FUDOSTEINE) [Concomitant]
  7. EVISTA [Concomitant]
  8. MUCOSTA (REBAMIPIDE) PER ORAL NOS [Concomitant]
  9. TOSUFLOXACIN TOSILATE (TOSUFLOXACIN TOSILATE) FORMULATION UNKNOWN [Concomitant]

REACTIONS (4)
  - HYPERTHERMIA [None]
  - INTERSTITIAL LUNG DISEASE [None]
  - PNEUMONIA BACTERIAL [None]
  - RESPIRATORY FAILURE [None]
